FAERS Safety Report 10932371 (Version 3)
Quarter: 2017Q3

REPORT INFORMATION
  Report Type: Spontaneous
  Country: US (occurrence: US)
  Receive Date: 20150320
  Receipt Date: 20170920
  Transmission Date: 20171127
  Serious: No
  Sender: FDA-Public Use
  Company Number: US-JNJFOC-20141109068

PATIENT
  Sex: Male

DRUGS (21)
  1. RISPERDAL [Suspect]
     Active Substance: RISPERIDONE
     Indication: AGGRESSION
     Dosage: 1 MG,2 MG
     Route: 048
     Dates: start: 20020502, end: 20041217
  2. RISPERDAL [Suspect]
     Active Substance: RISPERIDONE
     Indication: FRUSTRATION TOLERANCE DECREASED
     Dosage: 0.5 MG,1 MG
     Route: 048
     Dates: start: 20010807, end: 20011016
  3. RISPERDAL [Suspect]
     Active Substance: RISPERIDONE
     Indication: TIC
     Route: 048
     Dates: start: 1998, end: 2008
  4. RISPERDAL [Suspect]
     Active Substance: RISPERIDONE
     Indication: FRUSTRATION TOLERANCE DECREASED
     Route: 048
     Dates: start: 1998, end: 2008
  5. RISPERDAL [Suspect]
     Active Substance: RISPERIDONE
     Indication: TIC
     Dosage: 0.25 MG,0.5 MG
     Route: 048
     Dates: start: 20001114, end: 20001129
  6. RISPERDAL [Suspect]
     Active Substance: RISPERIDONE
     Indication: AGGRESSION
     Route: 048
     Dates: start: 1998, end: 2008
  7. RISPERDAL [Suspect]
     Active Substance: RISPERIDONE
     Indication: AGGRESSION
     Dosage: 0.25 MG,0.5 MG
     Route: 048
     Dates: start: 20001114, end: 20001129
  8. RISPERDAL [Suspect]
     Active Substance: RISPERIDONE
     Indication: FRUSTRATION TOLERANCE DECREASED
     Dosage: 0.25 MG,0.5 MG
     Route: 048
     Dates: start: 20001114, end: 20001129
  9. RISPERDAL [Suspect]
     Active Substance: RISPERIDONE
     Indication: ANGER
     Dosage: 0.5 MG,1 MG
     Route: 048
     Dates: start: 20011116, end: 20020416
  10. RISPERDAL [Suspect]
     Active Substance: RISPERIDONE
     Indication: ANGER
     Dosage: 1 MG,2 MG
     Route: 048
     Dates: start: 20020502, end: 20041217
  11. RISPERDAL [Suspect]
     Active Substance: RISPERIDONE
     Indication: ANGER
     Route: 048
     Dates: start: 1998, end: 2008
  12. RISPERDAL [Suspect]
     Active Substance: RISPERIDONE
     Indication: ANGER
     Dosage: 0.25 MG,0.5 MG
     Route: 048
     Dates: start: 20001114, end: 20001129
  13. RISPERDAL [Suspect]
     Active Substance: RISPERIDONE
     Indication: FRUSTRATION TOLERANCE DECREASED
     Dosage: 0.5 MG,1 MG
     Route: 048
     Dates: start: 20011116, end: 20020416
  14. RISPERIDONE. [Suspect]
     Active Substance: RISPERIDONE
     Indication: PRODUCT USED FOR UNKNOWN INDICATION
     Route: 048
  15. RISPERDAL [Suspect]
     Active Substance: RISPERIDONE
     Indication: FRUSTRATION TOLERANCE DECREASED
     Dosage: 1 MG,2 MG
     Route: 048
     Dates: start: 20020502, end: 20041217
  16. RISPERDAL [Suspect]
     Active Substance: RISPERIDONE
     Indication: TIC
     Dosage: 1 MG,2 MG
     Route: 048
     Dates: start: 20020502, end: 20041217
  17. RISPERDAL [Suspect]
     Active Substance: RISPERIDONE
     Indication: TIC
     Dosage: 0.5 MG,1 MG
     Route: 048
     Dates: start: 20011116, end: 20020416
  18. RISPERDAL [Suspect]
     Active Substance: RISPERIDONE
     Indication: TIC
     Dosage: 0.5 MG,1 MG
     Route: 048
     Dates: start: 20010807, end: 20011016
  19. RISPERDAL [Suspect]
     Active Substance: RISPERIDONE
     Indication: AGGRESSION
     Dosage: 0.5 MG,1 MG
     Route: 048
     Dates: start: 20010807, end: 20011016
  20. RISPERDAL [Suspect]
     Active Substance: RISPERIDONE
     Indication: ANGER
     Dosage: 0.5 MG,1 MG
     Route: 048
     Dates: start: 20010807, end: 20011016
  21. RISPERDAL [Suspect]
     Active Substance: RISPERIDONE
     Indication: AGGRESSION
     Dosage: 0.5 MG,1 MG
     Route: 048
     Dates: start: 20011116, end: 20020416

REACTIONS (3)
  - Gynaecomastia [Unknown]
  - Emotional disorder [Unknown]
  - Obesity [Unknown]

NARRATIVE: CASE EVENT DATE: 2007
